FAERS Safety Report 14228931 (Version 3)
Quarter: 2018Q3

REPORT INFORMATION
  Report Type: Spontaneous
  Country: JP (occurrence: JP)
  Receive Date: 20171128
  Receipt Date: 20180803
  Transmission Date: 20181010
  Serious: Yes (Hospitalization, Other)
  Sender: FDA-Public Use
  Company Number: JP-AMGEN-JPNSP2017177317

PATIENT
  Age: 82 Year
  Sex: Male

DRUGS (4)
  1. G?LASTA [Suspect]
     Active Substance: PEGFILGRASTIM
     Indication: COLONY STIMULATING FACTOR PROPHYLAXIS
     Dosage: 3.6 MG, QD
     Route: 058
     Dates: start: 20171021, end: 20171021
  2. DOCETAXEL. [Suspect]
     Active Substance: DOCETAXEL
     Dosage: 30 MG, QD
     Route: 041
     Dates: start: 20171019, end: 20171019
  3. DOCETAXEL. [Suspect]
     Active Substance: DOCETAXEL
     Dosage: 80 MG, QD
     Route: 041
     Dates: start: 20171019
  4. DOCETAXEL. [Suspect]
     Active Substance: DOCETAXEL
     Indication: HORMONE-REFRACTORY PROSTATE CANCER
     Dosage: 110 MG, QD
     Route: 041
     Dates: start: 20171019, end: 20171019

REACTIONS (1)
  - Interstitial lung disease [Recovering/Resolving]

NARRATIVE: CASE EVENT DATE: 20171030
